FAERS Safety Report 13078468 (Version 1)
Quarter: 2017Q1

REPORT INFORMATION
  Report Type: Spontaneous
  Country: US (occurrence: US)
  Receive Date: 20170102
  Receipt Date: 20170102
  Transmission Date: 20170428
  Serious: No
  Sender: FDA-Public Use
  Company Number: US-BRISTOL-MYERS SQUIBB COMPANY-BMS-2016-109936

PATIENT
  Sex: Male

DRUGS (1)
  1. ELIQUIS [Suspect]
     Active Substance: APIXABAN
     Indication: CEREBROVASCULAR ACCIDENT PROPHYLAXIS
     Dosage: 20 MG, BID
     Route: 048

REACTIONS (7)
  - Back pain [Not Recovered/Not Resolved]
  - Prescribed overdose [Unknown]
  - Constipation [Unknown]
  - Insomnia [Unknown]
  - Extrasystoles [Unknown]
  - Arthralgia [Unknown]
  - Drug ineffective [Unknown]
